FAERS Safety Report 5009763-8 (Version None)
Quarter: 2006Q2

REPORT INFORMATION
  Report Type: 
  Country: None (occurrence: None)
  Receive Date: 20060524
  Receipt Date: 20060516
  Transmission Date: 20061013
  Serious: Yes (Other)
  Sender: FDA-Public Use
  Company Number: US-ROCHE-448482

PATIENT
  Sex: Male
  Weight: 4.5 kg

DRUGS (1)
  1. ACCUTANE [Suspect]
     Dates: start: 19901002, end: 19910615

REACTIONS (7)
  - ABDOMINAL DISTENSION [None]
  - CAESAREAN SECTION [None]
  - DRUG EXPOSURE DURING PREGNANCY [None]
  - FOETAL MACROSOMIA [None]
  - LIVE BIRTH [None]
  - MECONIUM IN AMNIOTIC FLUID [None]
  - NEONATAL DISORDER [None]
